FAERS Safety Report 21149509 (Version 3)
Quarter: 2022Q3

REPORT INFORMATION
  Report Type: Spontaneous
  Country: IT (occurrence: IT)
  Receive Date: 20220729
  Receipt Date: 20220826
  Transmission Date: 20221027
  Serious: Yes (Other)
  Sender: FDA-Public Use
  Company Number: IT-ROCHE-3133984

PATIENT
  Age: 62 Year
  Sex: Male

DRUGS (5)
  1. BENDAMUSTINE HYDROCHLORIDE [Suspect]
     Active Substance: BENDAMUSTINE HYDROCHLORIDE
     Indication: Diffuse large B-cell lymphoma
     Route: 042
  2. POLIVY [Suspect]
     Active Substance: POLATUZUMAB VEDOTIN-PIIQ
     Indication: Diffuse large B-cell lymphoma
     Route: 042
     Dates: start: 20220624, end: 20220701
  3. RITUXIMAB [Suspect]
     Active Substance: RITUXIMAB
     Indication: Diffuse large B-cell lymphoma
     Dosage: 375 MG/MQ
     Route: 042
  4. R-CODOX-M/IVAC [Concomitant]
     Indication: Product used for unknown indication
     Route: 065
  5. R GEMOX [Concomitant]
     Indication: Product used for unknown indication
     Route: 065

REACTIONS (4)
  - Malignant neoplasm progression [Unknown]
  - Cytomegalovirus infection reactivation [Recovered/Resolved]
  - COVID-19 [Recovered/Resolved]
  - Off label use [Unknown]
